FAERS Safety Report 7490418-5 (Version None)
Quarter: 2011Q2

REPORT INFORMATION
  Report Type: 
  Country: None (occurrence: None)
  Receive Date: 20110519
  Receipt Date: 20110428
  Transmission Date: 20111010
  Serious: Yes (Hospitalization, Other)
  Sender: FDA-Public Use
  Company Number: US-BAYER-2011-009509

PATIENT
  Age: 47 Year
  Sex: Female
  Weight: 92.971 kg

DRUGS (5)
  1. YAZ [Suspect]
     Indication: MENORRHAGIA
     Dosage: UNK
     Dates: start: 20070101, end: 20090201
  2. IBUPROFEN [Concomitant]
  3. ASPIRIN [Concomitant]
     Indication: MIGRAINE
     Dosage: UNK
  4. BENICAR [Suspect]
     Indication: HYPERTENSION
     Dosage: UNK
     Dates: start: 20090101
  5. TOPROL-XL [Concomitant]
     Dosage: UNK
     Dates: start: 20070101, end: 20080101

REACTIONS (7)
  - DEEP VEIN THROMBOSIS [None]
  - INJURY [None]
  - PAIN [None]
  - EMOTIONAL DISTRESS [None]
  - OEDEMA PERIPHERAL [None]
  - PULMONARY EMBOLISM [None]
  - ANXIETY [None]
